FAERS Safety Report 4583616-1 (Version None)
Quarter: 2005Q1

REPORT INFORMATION
  Report Type: 
  Country: None (occurrence: None)
  Receive Date: 20050211
  Receipt Date: 20050204
  Transmission Date: 20050727
  Serious: Yes (Death, Hospitalization)
  Sender: FDA-Public Use
  Company Number: 212246

PATIENT
  Age: 79 Year
  Sex: Male

DRUGS (1)
  1. ACTILYSE (ALTEPLASE) PWDR + SOLVENT INFUSION; SOLN [Suspect]
     Indication: ISCHAEMIC STROKE
     Dates: start: 20040703, end: 20040703

REACTIONS (3)
  - HAEMOLYTIC ANAEMIA [None]
  - PNEUMONIA [None]
  - UROSEPSIS [None]
